APPROVED DRUG PRODUCT: IBUPROFEN
Active Ingredient: IBUPROFEN
Strength: 800MG
Dosage Form/Route: TABLET;ORAL
Application: A072137 | Product #001
Applicant: HALSEY DRUG CO INC
Approved: Feb 5, 1988 | RLD: No | RS: No | Type: DISCN